FAERS Safety Report 10255974 (Version 1)
Quarter: 2014Q2

REPORT INFORMATION
  Report Type: Spontaneous
  Country: IL (occurrence: IL)
  Receive Date: 20140624
  Receipt Date: 20140624
  Transmission Date: 20141212
  Serious: Yes (Other)
  Sender: FDA-Public Use
  Company Number: IL-VIIV HEALTHCARE LIMITED-B1000709A

PATIENT
  Age: 48 Year
  Sex: Male

DRUGS (4)
  1. TIVICAY [Suspect]
     Indication: HIV INFECTION
     Route: 065
  2. TRUVADA [Concomitant]
     Indication: HIV INFECTION
  3. LEXIVA [Concomitant]
     Dosage: 1400MG PER DAY
  4. NORVIR [Concomitant]
     Dosage: 100MG PER DAY

REACTIONS (5)
  - Serotonin syndrome [Recovered/Resolved]
  - Palpitations [Recovered/Resolved]
  - Flushing [Recovered/Resolved]
  - Diarrhoea [Recovered/Resolved]
  - Hyperhidrosis [Recovered/Resolved]
